FAERS Safety Report 5482535-6 (Version None)
Quarter: 2007Q4

REPORT INFORMATION
  Report Type: 
  Country: None (occurrence: None)
  Receive Date: 20071011
  Receipt Date: 20070627
  Transmission Date: 20080405
  Serious: No
  Sender: FDA-Public Use
  Company Number: A0660332A

PATIENT
  Age: 56 Year
  Sex: Female

DRUGS (10)
  1. TYKERB [Suspect]
     Indication: BREAST CANCER
     Dosage: 5TAB PER DAY
     Route: 048
     Dates: start: 20070623
  2. XELODA [Concomitant]
  3. LORAZEPAM [Concomitant]
  4. LASIX [Concomitant]
  5. COUMADIN [Concomitant]
  6. COMPAZINE [Concomitant]
  7. VITAMINS [Concomitant]
  8. TYLENOL (CAPLET) [Concomitant]
  9. TUMS [Concomitant]
  10. PRILOSEC [Concomitant]

REACTIONS (7)
  - DIARRHOEA [None]
  - FATIGUE [None]
  - FLATULENCE [None]
  - JOINT SWELLING [None]
  - NAUSEA [None]
  - PAIN IN EXTREMITY [None]
  - PYREXIA [None]
